FAERS Safety Report 10188997 (Version 1)
Quarter: 2014Q2

REPORT INFORMATION
  Report Type: Spontaneous
  Country: GB (occurrence: None)
  Receive Date: 20140520
  Receipt Date: 20140520
  Transmission Date: 20141212
  Serious: Yes (Disabling)
  Sender: FDA-Public Use
  Company Number: AUR-APL-2014-05621

PATIENT
  Age: 54 Year
  Sex: Female

DRUGS (8)
  1. ALENDRONIC ACID (ALENDRONIC ACID) [Suspect]
     Indication: PROPHYLAXIS
     Dosage: 70 MG, 1 IN 1 WK, ORAL
     Route: 048
     Dates: start: 2008, end: 2014
  2. ALLOPURINOL (ALLOPURINOL) [Concomitant]
  3. CO-CODAMOL (PANADEINE CO) [Concomitant]
  4. HYDROCORTISONE (HYDROCORTISONE) [Concomitant]
  5. LANSOPRAZOLE (LANSOPRAZOLE) [Concomitant]
  6. LEVOTHYROXINE (LEVOTHYROXINE) [Concomitant]
  7. METFORMIN (METFORMIN) [Concomitant]
  8. SIMVASTATIN (SIMVASTATIN) [Concomitant]

REACTIONS (4)
  - Atypical femur fracture [None]
  - Pain in extremity [None]
  - Weight bearing difficulty [None]
  - Fall [None]
